FAERS Safety Report 5002399-4 (Version None)
Quarter: 2006Q2

REPORT INFORMATION
  Report Type: 
  Country: None (occurrence: None)
  Receive Date: 20060510
  Receipt Date: 20060427
  Transmission Date: 20061013
  Serious: Yes (Hospitalization)
  Sender: FDA-Public Use
  Company Number: 2006PV012872

PATIENT
  Age: 53 Year
  Sex: Male

DRUGS (1)
  1. BYETTA [Suspect]
     Dosage: 10 MCG; BID;
     Dates: start: 20051201, end: 20060401

REACTIONS (2)
  - GASTRIC ULCER HAEMORRHAGE [None]
  - WEIGHT DECREASED [None]
